FAERS Safety Report 25632303 (Version 1)
Quarter: 2025Q3

REPORT INFORMATION
  Report Type: Spontaneous
  Country: US (occurrence: None)
  Receive Date: 20250731
  Receipt Date: 20250731
  Transmission Date: 20251021
  Serious: Yes (Life-Threatening, Hospitalization, Other)
  Sender: FDA-CTU
  Company Number: None

PATIENT
  Age: 33 Year
  Sex: Male
  Weight: 90.4 kg

DRUGS (4)
  1. TROSPIUM CHLORIDE\XANOMELINE [Suspect]
     Active Substance: TROSPIUM CHLORIDE\XANOMELINE
     Indication: Schizophrenia
     Dosage: 1 DF DOSAGE  FORM TWICE A DAY ORAL
     Route: 048
     Dates: start: 20250617, end: 20250626
  2. FAMOTIDINE [Concomitant]
     Active Substance: FAMOTIDINE
  3. Quetiapine 500mg [Concomitant]
  4. Valproic Acid 750 mg (15 ml) [Concomitant]

REACTIONS (13)
  - Hyperhidrosis [None]
  - Chest pain [None]
  - Vomiting [None]
  - Lethargy [None]
  - Dizziness [None]
  - Blood pressure increased [None]
  - Dehydration [None]
  - Blood lactic acid increased [None]
  - Amphetamines positive [None]
  - Gastroenteritis [None]
  - Tachycardia [None]
  - Hypovolaemia [None]
  - Mallory-Weiss syndrome [None]

NARRATIVE: CASE EVENT DATE: 20250625
